FAERS Safety Report 18243412 (Version 1)
Quarter: 2020Q3

REPORT INFORMATION
  Report Type: Spontaneous
  Country: US (occurrence: US)
  Receive Date: 20200908
  Receipt Date: 20200908
  Transmission Date: 20201103
  Serious: Yes (Other)
  Sender: FDA-Public Use
  Company Number: US-ALEXION-A202012949

PATIENT
  Sex: Female

DRUGS (2)
  1. SOLIRIS [Suspect]
     Active Substance: ECULIZUMAB
     Dosage: UNK
     Route: 065
     Dates: start: 202007
  2. SOLIRIS [Suspect]
     Active Substance: ECULIZUMAB
     Indication: MYASTHENIA GRAVIS
     Dosage: UNK
     Route: 065
     Dates: end: 2019

REACTIONS (7)
  - Gastrooesophageal reflux disease [Unknown]
  - Fatigue [Unknown]
  - Bladder disorder [Unknown]
  - Incontinence [Unknown]
  - Dysphagia [Unknown]
  - Impaired gastric emptying [Unknown]
  - Weight increased [Unknown]
